FAERS Safety Report 11795158 (Version 1)
Quarter: 2015Q4

REPORT INFORMATION
  Report Type: Spontaneous
  Country: JP (occurrence: JP)
  Receive Date: 20151202
  Receipt Date: 20151202
  Transmission Date: 20160305
  Serious: Yes (Hospitalization)
  Sender: FDA-Public Use
  Company Number: JP-ABBVIE-15P-087-1488801-00

PATIENT
  Sex: Female

DRUGS (8)
  1. AMBROXOL HYDROCHLORIDE [Concomitant]
     Active Substance: AMBROXOL HYDROCHLORIDE
     Indication: ASTHMA
     Route: 048
  2. EPRAZINONE HYDROCHLORIDE [Concomitant]
     Active Substance: EPRAZINONE HYDROCHLORIDE
     Indication: ASTHMA
     Route: 048
  3. KLARICID [Suspect]
     Active Substance: CLARITHROMYCIN
     Indication: ACUTE SINUSITIS
     Route: 048
     Dates: start: 201403, end: 201404
  4. CARBOCISTEINE [Concomitant]
     Active Substance: CARBOCYSTEINE
     Indication: ASTHMA
     Route: 048
  5. MONTELUKAST SODIUM. [Concomitant]
     Active Substance: MONTELUKAST SODIUM
     Indication: ASTHMA
     Route: 048
     Dates: start: 20140331
  6. HOKUNALIN [Suspect]
     Active Substance: TULOBUTEROL
     Indication: ASTHMA
     Route: 062
     Dates: start: 201403, end: 201404
  7. BUDESONIDE W/FORMOTEROL FUMARATE [Concomitant]
     Active Substance: BUDESONIDE\FORMOTEROL FUMARATE
     Indication: ASTHMA
     Dosage: 2 INHALATION TWICE DAILY
     Route: 055
  8. PRONASE [Concomitant]
     Indication: ACUTE SINUSITIS
     Route: 048

REACTIONS (1)
  - Blood creatine phosphokinase increased [Unknown]
